FAERS Safety Report 14068193 (Version 1)
Quarter: 2017Q4

REPORT INFORMATION
  Report Type: Other
  Country: CA (occurrence: CA)
  Receive Date: 20171010
  Receipt Date: 20171010
  Transmission Date: 20180321
  Serious: Yes (Hospitalization, Other)
  Sender: FDA-Public Use
  Company Number: CA-APOTEX-2017AP019384

PATIENT
  Age: 72 Year
  Sex: Female

DRUGS (2)
  1. PREDNISONE. [Concomitant]
     Active Substance: PREDNISONE
     Indication: PRODUCT USED FOR UNKNOWN INDICATION
     Dosage: UNK
     Route: 065
  2. APO-SALVENT [Suspect]
     Active Substance: ALBUTEROL
     Indication: PRODUCT USED FOR UNKNOWN INDICATION
     Dosage: UNK
     Route: 065

REACTIONS (12)
  - Dysphagia [Unknown]
  - Infection [Unknown]
  - Swollen tongue [Unknown]
  - Dizziness [Unknown]
  - Hospitalisation [Unknown]
  - Dyspnoea [Unknown]
  - Feeling abnormal [Unknown]
  - General physical health deterioration [Unknown]
  - Asthenia [Unknown]
  - Malaise [Unknown]
  - Gait disturbance [Unknown]
  - Vision blurred [Unknown]
